FAERS Safety Report 9929403 (Version 1)
Quarter: 2014Q1

REPORT INFORMATION
  Report Type: Spontaneous
  Country: CO (occurrence: CO)
  Receive Date: 20140227
  Receipt Date: 20140227
  Transmission Date: 20141002
  Serious: Yes (Hospitalization)
  Sender: FDA-Public Use
  Company Number: CO-BRISTOL-MYERS SQUIBB COMPANY-20256202

PATIENT
  Age: 54 Year
  Sex: Female

DRUGS (5)
  1. ABATACEPT [Suspect]
     Indication: RHEUMATOID ARTHRITIS
     Dosage: INJECTION?750MG
     Dates: start: 20131115
  2. TRAMADOL HCL [Suspect]
     Indication: PAIN
     Dosage: REDUCED TO 5 DROPS
     Dates: start: 20140121
  3. PREDNISOLONE [Concomitant]
     Indication: RHEUMATOID ARTHRITIS
     Dosage: TABS
     Dates: start: 20080101
  4. CALCIUM + VITAMIN D [Concomitant]
     Indication: PROPHYLAXIS
     Dosage: 200UI FREQ 0-1-0
  5. METHOTREXATE [Concomitant]
     Indication: RHEUMATOID ARTHRITIS
     Dosage: TABS
     Dates: start: 20080101

REACTIONS (4)
  - Arthralgia [Recovered/Resolved]
  - Hyperhidrosis [Recovered/Resolved]
  - Somnolence [Recovered/Resolved]
  - Depression [Recovered/Resolved]
